FAERS Safety Report 5130712-6 (Version None)
Quarter: 2006Q4

REPORT INFORMATION
  Report Type: 
  Country: None (occurrence: None)
  Receive Date: 20061019
  Receipt Date: 20061010
  Transmission Date: 20070319
  Serious: Yes (Other)
  Sender: FDA-Public Use
  Company Number: US-JNJFOC-20061002350

PATIENT
  Sex: Female
  Weight: 62.6 kg

DRUGS (10)
  1. REMICADE [Suspect]
  2. REMICADE [Suspect]
     Indication: RHEUMATOID ARTHRITIS
     Dosage: TWO DOSES ON UNKNOWN DATES
  3. REMICADE [Suspect]
     Indication: CROHN'S DISEASE
  4. PROTONIX [Concomitant]
  5. IMURAN [Concomitant]
     Indication: CROHN'S DISEASE
     Dosage: DOSE 3 TABLETS DAILY
  6. WELLBUTRIN [Concomitant]
  7. SERZONE [Concomitant]
  8. DETROL LA [Concomitant]
  9. REQUIP [Concomitant]
  10. ZOCOR [Concomitant]

REACTIONS (4)
  - ARTHRALGIA [None]
  - HEADACHE [None]
  - SINUS DISORDER [None]
  - VISION BLURRED [None]
